FAERS Safety Report 5915820-1 (Version None)
Quarter: 2008Q4

REPORT INFORMATION
  Report Type: 
  Country: None (occurrence: None)
  Receive Date: 20081010
  Receipt Date: 20081001
  Transmission Date: 20090506
  Serious: Yes (Other)
  Sender: FDA-Public Use
  Company Number: US-PFIZER INC-2008082716

PATIENT
  Sex: Male

DRUGS (2)
  1. CELEBREX [Suspect]
     Indication: BACK PAIN
  2. CYCLOBENZAPRINE HCL [Interacting]
     Indication: BACK PAIN

REACTIONS (2)
  - DRUG INTERACTION [None]
  - STUPOR [None]
